FAERS Safety Report 8125882-1 (Version None)
Quarter: 2012Q1

REPORT INFORMATION
  Report Type: 
  Country: None (occurrence: None)
  Receive Date: 20120209
  Receipt Date: 20120206
  Transmission Date: 20120608
  Serious: Yes (Other)
  Sender: FDA-Public Use
  Company Number: US-PFIZER INC-2012032781

PATIENT
  Sex: Female
  Weight: 63 kg

DRUGS (3)
  1. LIPITOR [Suspect]
     Indication: BLOOD CHOLESTEROL ABNORMAL
     Dosage: 20 MG, DAILY
     Route: 048
     Dates: start: 20111101
  2. SYNTHROID [Concomitant]
     Dosage: UNK
     Route: 048
  3. NEXIUM [Concomitant]
     Indication: HIATUS HERNIA
     Dosage: 40 MG, DAILY
     Route: 048

REACTIONS (7)
  - BACTERIAL INFECTION [None]
  - DYSGEUSIA [None]
  - WEIGHT INCREASED [None]
  - MIDDLE INSOMNIA [None]
  - DRY MOUTH [None]
  - ABDOMINAL DISCOMFORT [None]
  - ABDOMINAL PAIN UPPER [None]
